FAERS Safety Report 17044935 (Version 1)
Quarter: 2019Q4

REPORT INFORMATION
  Report Type: Spontaneous
  Country: US (occurrence: US)
  Receive Date: 20191118
  Receipt Date: 20191118
  Transmission Date: 20200122
  Serious: Yes (Other)
  Sender: FDA-Public Use
  Company Number: US-BAUSCH-BL-2019-060691

PATIENT
  Sex: Male

DRUGS (1)
  1. APLENZIN [Suspect]
     Active Substance: BUPROPION HYDROBROMIDE
     Indication: PRODUCT USED FOR UNKNOWN INDICATION
     Route: 065
     Dates: end: 2019

REACTIONS (2)
  - Therapy cessation [Unknown]
  - Suicide attempt [Unknown]

NARRATIVE: CASE EVENT DATE: 2019
